FAERS Safety Report 4785453-1 (Version None)
Quarter: 2005Q4

REPORT INFORMATION
  Report Type: 
  Country: None (occurrence: None)
  Receive Date: 20051003
  Receipt Date: 20010508
  Transmission Date: 20060501
  Serious: Yes (Death, Life-Threatening, Hospitalization, Other)
  Sender: FDA-Public Use
  Company Number: 2001SE03644

PATIENT
  Age: 44 Year
  Sex: Male
  Weight: 80 kg

DRUGS (11)
  1. TENORMIN [Suspect]
     Route: 048
     Dates: end: 20010407
  2. VIRACEPT [Suspect]
     Indication: HIV INFECTION
     Route: 048
     Dates: start: 19981001, end: 20010407
  3. COMBIVIR [Suspect]
     Indication: HIV INFECTION
     Dosage: 2 TABLETS
     Dates: start: 19991201, end: 20010407
  4. METHADON [Suspect]
     Indication: POLYSUBSTANCE DEPENDENCE
     Route: 048
     Dates: start: 19930101
  5. SERESTA FORTE [Suspect]
     Indication: INSOMNIA
     Route: 048
  6. TRUXAL [Concomitant]
  7. DUPHALAC [Concomitant]
     Dosage: 15 ML 2-3 TIMES PER DAY
     Route: 048
  8. ALDACTONE [Concomitant]
  9. POTASSIUM CHLORIDE [Concomitant]
     Route: 048
  10. POLVITE [Concomitant]
  11. VITAMIN B6 [Concomitant]

REACTIONS (25)
  - ALANINE AMINOTRANSFERASE INCREASED [None]
  - AMMONIA INCREASED [None]
  - ARRHYTHMIA [None]
  - ARTHRALGIA [None]
  - ASPARTATE AMINOTRANSFERASE INCREASED [None]
  - BLOOD ALKALINE PHOSPHATASE INCREASED [None]
  - BLOOD LACTATE DEHYDROGENASE INCREASED [None]
  - BRADYCARDIA [None]
  - DUODENAL ULCER [None]
  - DYSPNOEA [None]
  - ELECTROCARDIOGRAM QT PROLONGED [None]
  - EPILEPSY [None]
  - GAMMA-GLUTAMYLTRANSFERASE INCREASED [None]
  - HEPATIC CIRRHOSIS [None]
  - HEPATIC ENZYME INCREASED [None]
  - HYPERBILIRUBINAEMIA [None]
  - HYPOALBUMINAEMIA [None]
  - PERITONITIS BACTERIAL [None]
  - POLYSUBSTANCE ABUSE [None]
  - PROTHROMBIN TIME SHORTENED [None]
  - SPLENOMEGALY [None]
  - SYNCOPE [None]
  - TORSADE DE POINTES [None]
  - VENTRICULAR EXTRASYSTOLES [None]
  - WEIGHT DECREASED [None]
